FAERS Safety Report 15560835 (Version 2)
Quarter: 2018Q4

REPORT INFORMATION
  Report Type: Spontaneous
  Country: US (occurrence: US)
  Receive Date: 20181029
  Receipt Date: 20181120
  Transmission Date: 20190205
  Serious: No
  Sender: FDA-Public Use
  Company Number: US-PFIZER INC-2018432924

PATIENT
  Age: 72 Year
  Sex: Female
  Weight: 74 kg

DRUGS (1)
  1. IBRANCE [Suspect]
     Active Substance: PALBOCICLIB
     Indication: BREAST CANCER FEMALE
     Dosage: 100 MG, CYCLIC (ONE FOR 21 DAYS AND OFF FOR 7 DAYS)
     Route: 048
     Dates: start: 201806, end: 201810

REACTIONS (5)
  - Rash [Unknown]
  - Fatigue [Recovered/Resolved]
  - Alopecia [Recovered/Resolved]
  - Pruritus [Unknown]
  - Neoplasm progression [Unknown]

NARRATIVE: CASE EVENT DATE: 2018
